FAERS Safety Report 24624228 (Version 1)
Quarter: 2024Q4

REPORT INFORMATION
  Report Type: Spontaneous
  Country: US (occurrence: None)
  Receive Date: 20241115
  Receipt Date: 20241115
  Transmission Date: 20250115
  Serious: Yes (Hospitalization)
  Sender: Public
  Company Number: None

PATIENT
  Sex: Female

DRUGS (3)
  1. NORDITROPIN [Suspect]
     Active Substance: SOMATROPIN
     Indication: Hypopituitarism
     Dosage: 0.5 MG 1 TIME A DAY UNDER THE SKIN?
     Route: 042
     Dates: start: 202205
  2. NORDITROPIN FLEXPRO PEN [Concomitant]
  3. DUPIXENT [Concomitant]
     Active Substance: DUPILUMAB

REACTIONS (3)
  - Hypopituitarism [None]
  - Condition aggravated [None]
  - Therapy interrupted [None]
